FAERS Safety Report 12525383 (Version 1)
Quarter: 2016Q3

REPORT INFORMATION
  Report Type: Spontaneous
  Country: US (occurrence: US)
  Receive Date: 20160704
  Receipt Date: 20160704
  Transmission Date: 20161109
  Serious: Yes (Hospitalization)
  Sender: FDA-Public Use
  Company Number: US-TAIHO ONCOLOGY INC-EU-2016-01454

PATIENT
  Age: 56 Year
  Sex: Female

DRUGS (3)
  1. BETHANECHOL [Concomitant]
     Active Substance: BETHANECHOL
     Dosage: NI
  2. STIVARGA [Concomitant]
     Active Substance: REGORAFENIB
     Dosage: NI
  3. LONSURF [Suspect]
     Active Substance: TIPIRACIL HYDROCHLORIDE\TRIFLURIDINE
     Indication: CARCINOID TUMOUR
     Route: 048
     Dates: start: 20160602, end: 201606

REACTIONS (2)
  - Urinary tract infection [Recovered/Resolved]
  - Intestinal obstruction [Recovered/Resolved]

NARRATIVE: CASE EVENT DATE: 20160610
